FAERS Safety Report 16981235 (Version 2)
Quarter: 2019Q4

REPORT INFORMATION
  Report Type: Spontaneous
  Country: US (occurrence: US)
  Receive Date: 20191031
  Receipt Date: 20191126
  Transmission Date: 20200122
  Serious: Yes (Hospitalization, Other)
  Sender: FDA-Public Use
  Company Number: US-009507513-1910USA016036

PATIENT
  Age: 29 Year
  Sex: Female

DRUGS (2)
  1. NEXPLANON [Suspect]
     Active Substance: ETONOGESTREL
     Dosage: 1 IMPLANT, UNK
     Route: 058
     Dates: start: 20180802
  2. NEXPLANON [Suspect]
     Active Substance: ETONOGESTREL
     Indication: CONTRACEPTION
     Dosage: 1 IMPLANT, UNK
     Route: 059

REACTIONS (7)
  - Acute myocardial infarction [Unknown]
  - Hyperlipidaemia [Unknown]
  - Blood glucose increased [Unknown]
  - Blood urea decreased [Unknown]
  - Coagulation time prolonged [Unknown]
  - Aspartate aminotransferase increased [Unknown]
  - Obesity [Unknown]

NARRATIVE: CASE EVENT DATE: 201910
